FAERS Safety Report 6087333-0 (Version None)
Quarter: 2009Q1

REPORT INFORMATION
  Report Type: 
  Country: None (occurrence: None)
  Receive Date: 20090223
  Receipt Date: 20090216
  Transmission Date: 20090719
  Serious: Yes (Hospitalization)
  Sender: FDA-Public Use
  Company Number: B0554475A

PATIENT
  Age: 75 Year
  Sex: Female

DRUGS (17)
  1. VALTREX [Suspect]
     Indication: HERPES ZOSTER
     Dosage: 1000MG THREE TIMES PER DAY
     Route: 048
     Dates: start: 20081201, end: 20081204
  2. ALLEGRA [Concomitant]
     Indication: PRURITUS
     Dosage: 120MG PER DAY
     Route: 048
     Dates: start: 20061225
  3. ATARAX [Concomitant]
     Indication: PRURITUS
     Dosage: 25MG PER DAY
     Route: 048
     Dates: start: 20080924
  4. TEGRETOL [Concomitant]
     Indication: HEADACHE
     Dosage: 200MG PER DAY
     Route: 048
     Dates: start: 20080709
  5. METHYLCOBAL [Concomitant]
     Dosage: 1500MG PER DAY
     Route: 048
     Dates: start: 20080716
  6. UNKNOWN DRUG [Concomitant]
     Indication: MUSCLE TIGHTNESS
     Dosage: 3MG PER DAY
     Route: 048
     Dates: start: 20040301
  7. AZUCURENIN S [Concomitant]
     Indication: GASTRITIS
     Dosage: 2.01MG PER DAY
     Route: 048
     Dates: start: 20040301
  8. PRORENAL [Concomitant]
     Dosage: 15MCG PER DAY
     Route: 048
     Dates: start: 20060911
  9. LOXONIN [Concomitant]
     Indication: PAIN
     Dosage: 180MG PER DAY
     Route: 048
     Dates: start: 20051212, end: 20080108
  10. SEPAMIT [Concomitant]
     Indication: HYPERTENSION
     Dosage: 20MG PER DAY
     Route: 048
     Dates: start: 20030301
  11. LIPITOR [Concomitant]
     Dosage: 10MG PER DAY
     Route: 048
     Dates: start: 20030301
  12. ASPIRIN [Concomitant]
     Indication: THROMBOSIS PROPHYLAXIS
     Dosage: 100MG PER DAY
     Route: 048
     Dates: start: 20071220
  13. CHINESE MEDICINE [Concomitant]
     Indication: CONSTIPATION
     Dosage: 3G PER DAY
     Route: 048
     Dates: start: 20031101
  14. MAGMITT [Concomitant]
     Indication: CONSTIPATION
     Dosage: 500MG PER DAY
     Route: 048
     Dates: start: 20070510
  15. SEPAZON [Concomitant]
     Indication: ANXIETY
     Dosage: 2MG PER DAY
     Route: 048
     Dates: start: 20031101
  16. DIAZEPAM [Concomitant]
     Indication: ANXIETY
     Dosage: 2MG PER DAY
     Route: 048
     Dates: start: 20080918
  17. UNKNOWN DRUG [Concomitant]
     Indication: CONSTIPATION
     Route: 048
     Dates: start: 20031101

REACTIONS (2)
  - FEELING ABNORMAL [None]
  - RENAL DISORDER [None]
